FAERS Safety Report 6285110-9 (Version None)
Quarter: 2009Q3

REPORT INFORMATION
  Report Type: 
  Country: None (occurrence: None)
  Receive Date: 20090727
  Receipt Date: 20090720
  Transmission Date: 20100115
  Serious: Yes (Other)
  Sender: FDA-Public Use
  Company Number: DE-BRISTOL-MYERS SQUIBB COMPANY-14695837

PATIENT
  Age: 64 Year
  Sex: Male
  Weight: 56 kg

DRUGS (7)
  1. SUSTIVA [Suspect]
     Indication: HIV INFECTION
     Route: 048
     Dates: start: 20050701
  2. ZIAGEN [Suspect]
     Indication: HIV INFECTION
     Route: 048
     Dates: start: 20050701
  3. EPIVIR [Suspect]
     Indication: HIV INFECTION
     Dosage: SOLUTION
     Route: 048
     Dates: start: 20050701
  4. COTRIM [Suspect]
     Indication: HIV INFECTION
     Route: 048
  5. AMIODARONE HCL [Suspect]
  6. PANTOPRAZOLE SODIUM [Suspect]
  7. XIPAMIDE [Suspect]

REACTIONS (3)
  - DISEASE PROGRESSION [None]
  - HAEMODIALYSIS [None]
  - RENAL FAILURE CHRONIC [None]
